FAERS Safety Report 11307925 (Version 5)
Quarter: 2016Q1

REPORT INFORMATION
  Report Type: Report from Study
  Country: US (occurrence: US)
  Receive Date: 20150724
  Receipt Date: 20160215
  Transmission Date: 20160525
  Serious: Yes (Hospitalization, Other)
  Sender: FDA-Public Use
  Company Number: US-AMGEN-USASP2014037591

PATIENT
  Age: 52 Year
  Sex: Female

DRUGS (1)
  1. NPLATE [Suspect]
     Active Substance: ROMIPLOSTIM
     Indication: IMMUNE THROMBOCYTOPENIC PURPURA
     Dosage: UNK, QWK
     Route: 065
     Dates: start: 2008

REACTIONS (28)
  - Diarrhoea [Unknown]
  - Stress [Unknown]
  - Platelet count abnormal [Unknown]
  - Injection site rash [Not Recovered/Not Resolved]
  - Fatigue [Recovered/Resolved]
  - Pancreatitis [Not Recovered/Not Resolved]
  - Irritable bowel syndrome [Unknown]
  - Decreased appetite [Unknown]
  - Diabetic neuropathy [Unknown]
  - Gait disturbance [Unknown]
  - Oesophageal disorder [Unknown]
  - Vomiting [Unknown]
  - White blood cell count decreased [Unknown]
  - Functional gastrointestinal disorder [Unknown]
  - Muscle spasms [Not Recovered/Not Resolved]
  - Platelet count decreased [Unknown]
  - Malaise [Unknown]
  - Dehydration [Unknown]
  - Asthenia [Unknown]
  - Malnutrition [Unknown]
  - Sleep disorder [Unknown]
  - Abdominal pain upper [Unknown]
  - Gastritis [Unknown]
  - Irritability [Unknown]
  - Nausea [Recovered/Resolved]
  - Gastroenteritis viral [Unknown]
  - Anaemia [Recovered/Resolved]
  - Headache [Not Recovered/Not Resolved]

NARRATIVE: CASE EVENT DATE: 201404
